FAERS Safety Report 11201155 (Version 3)
Quarter: 2015Q3

REPORT INFORMATION
  Report Type: Spontaneous
  Country: JP (occurrence: JP)
  Receive Date: 20150619
  Receipt Date: 20150828
  Transmission Date: 20151125
  Serious: Yes (Hospitalization, Other)
  Sender: FDA-Public Use
  Company Number: JP-009507513-1506JPN007698

PATIENT
  Age: 68 Year
  Sex: Female

DRUGS (9)
  1. LIPITOR [Concomitant]
     Active Substance: ATORVASTATIN CALCIUM
     Indication: DYSLIPIDAEMIA
     Dosage: 10 MG, QD
     Route: 048
     Dates: start: 20120508
  2. MAGMITT [Concomitant]
     Active Substance: MAGNESIUM OXIDE
     Indication: CONSTIPATION
     Dosage: 660 MG,TWICE A DAY
     Route: 048
     Dates: start: 20120508
  3. ASPARA CA [Concomitant]
     Indication: OSTEOPOROSIS
     Dosage: 400 MG, TWICE A DAY
     Route: 048
     Dates: start: 20120505
  4. ALLELOCK [Concomitant]
     Active Substance: OLOPATADINE HYDROCHLORIDE
     Indication: DERMATITIS
     Dosage: 5 MG, TWICE D DAY
     Route: 048
     Dates: start: 20120508
  5. ONEALFA [Concomitant]
     Active Substance: ALFACALCIDOL
     Indication: OSTEOPOROSIS
     Dosage: 0.5 MICROGRAM, QD
     Route: 048
     Dates: start: 20120508
  6. STROMECTOL [Suspect]
     Active Substance: IVERMECTIN
     Indication: ACARODERMATITIS
     Dosage: 6 MG, 1 A DAY, THE FIRST DOSE
     Route: 048
     Dates: start: 20150409, end: 20150409
  7. STROMECTOL [Suspect]
     Active Substance: IVERMECTIN
     Dosage: 6 MG ONCE DAILY, THE SECOND DOSE
     Route: 048
     Dates: start: 20150416, end: 20150416
  8. TAKEPRON [Concomitant]
     Active Substance: LANSOPRAZOLE
     Indication: GASTRITIS
     Dosage: 15 MG, QD
     Route: 048
     Dates: start: 20120508
  9. PREDNISOLONE. [Concomitant]
     Active Substance: PREDNISOLONE
     Indication: POLYMYOSITIS
     Dosage: 5 MG, 1 A DAY
     Route: 048
     Dates: start: 20120508

REACTIONS (1)
  - Coombs positive haemolytic anaemia [Recovered/Resolved]

NARRATIVE: CASE EVENT DATE: 20150417
